FAERS Safety Report 24988811 (Version 1)
Quarter: 2025Q1

REPORT INFORMATION
  Report Type: Spontaneous
  Country: EU (occurrence: EU)
  Receive Date: 20250220
  Receipt Date: 20250220
  Transmission Date: 20250409
  Serious: Yes (Other)
  Sender: BAUSCH AND LOMB
  Company Number: None

PATIENT
  Age: 80 Year
  Sex: Male
  Weight: 98 kg

DRUGS (1)
  1. TROPICAMIDE [Suspect]
     Active Substance: TROPICAMIDE
     Indication: Ophthalmological examination
     Route: 047
     Dates: start: 20241002

REACTIONS (1)
  - Eye haemorrhage [Not Recovered/Not Resolved]
